FAERS Safety Report 18054048 (Version 9)
Quarter: 2021Q2

REPORT INFORMATION
  Report Type: Spontaneous
  Country: US (occurrence: US)
  Receive Date: 20200722
  Receipt Date: 20210617
  Transmission Date: 20210717
  Serious: Yes (Other)
  Sender: FDA-Public Use
  Company Number: US-PFIZER INC-2020279422

PATIENT
  Age: 70 Year
  Sex: Female

DRUGS (2)
  1. IBRANCE [Suspect]
     Active Substance: PALBOCICLIB
     Dosage: 75 MG, DAILY
     Route: 048
  2. IBRANCE [Suspect]
     Active Substance: PALBOCICLIB
     Dosage: UNK

REACTIONS (26)
  - Blood glucose increased [Not Recovered/Not Resolved]
  - Blood calcium increased [Unknown]
  - Visual impairment [Unknown]
  - Off label use [Unknown]
  - Eating disorder [Unknown]
  - Asthenia [Unknown]
  - Exercise tolerance decreased [Unknown]
  - Cerebral disorder [Unknown]
  - Tremor [Unknown]
  - Asthenopia [Unknown]
  - Alopecia [Unknown]
  - Insomnia [Recovered/Resolved]
  - Headache [Recovered/Resolved]
  - Dyspnoea [Unknown]
  - Dermatitis exfoliative [Unknown]
  - Rash [Recovered/Resolved]
  - Burning sensation [Unknown]
  - Weight decreased [Not Recovered/Not Resolved]
  - Fatigue [Not Recovered/Not Resolved]
  - Neoplasm progression [Unknown]
  - Memory impairment [Unknown]
  - Rash erythematous [Unknown]
  - Somnolence [Unknown]
  - Crying [Unknown]
  - Weight increased [Unknown]
  - Underweight [Unknown]

NARRATIVE: CASE EVENT DATE: 202011
